FAERS Safety Report 5563561-5 (Version None)
Quarter: 2007Q4

REPORT INFORMATION
  Report Type: 
  Country: None (occurrence: None)
  Receive Date: 20071217
  Receipt Date: 20070625
  Transmission Date: 20080405
  Serious: No
  Sender: FDA-Public Use
  Company Number: US-ASTRAZENECA-2007UW15113

PATIENT
  Age: 70 Year
  Sex: Female
  Weight: 127 kg

DRUGS (5)
  1. CRESTOR [Suspect]
     Indication: BLOOD CHOLESTEROL INCREASED
     Route: 048
  2. TOPROL-XL [Concomitant]
     Route: 048
  3. ATACAND [Concomitant]
     Route: 048
  4. GLUCOSAMINE [Concomitant]
  5. CENTRUM SILVER [Concomitant]
     Dosage: ONE TABLET DAILY

REACTIONS (3)
  - CHEST PAIN [None]
  - MEDICATION ERROR [None]
  - PAIN IN EXTREMITY [None]
